FAERS Safety Report 9915975 (Version 2)
Quarter: 2014Q1

REPORT INFORMATION
  Report Type: Spontaneous
  Country: US (occurrence: US)
  Receive Date: 20140221
  Receipt Date: 20140311
  Transmission Date: 20141002
  Serious: Yes (Other)
  Sender: FDA-Public Use
  Company Number: US-SA-2014SA020805

PATIENT
  Age: 83 Year
  Sex: Female
  Weight: 57.6 kg

DRUGS (8)
  1. LANTUS SOLOSTAR [Suspect]
     Indication: TYPE 2 DIABETES MELLITUS
     Dosage: 10-12 UNITS
     Route: 058
     Dates: start: 2007
  2. GLIMEPIRIDE [Suspect]
     Route: 065
  3. SOLOSTAR [Concomitant]
     Indication: TYPE 2 DIABETES MELLITUS
     Dates: start: 2007
  4. RAMIPRIL [Concomitant]
  5. LEVOXYL [Concomitant]
  6. ASPIRIN [Concomitant]
  7. METOPROLOL [Concomitant]
  8. ATORVASTATIN [Concomitant]

REACTIONS (3)
  - Dementia [Unknown]
  - Memory impairment [Unknown]
  - Incorrect product storage [Unknown]
